FAERS Safety Report 19958252 (Version 2)
Quarter: 2021Q4

REPORT INFORMATION
  Report Type: Spontaneous
  Country: US (occurrence: US)
  Receive Date: 20211015
  Receipt Date: 20211022
  Transmission Date: 20220303
  Serious: Yes (Other)
  Sender: FDA-Public Use
  Company Number: None

PATIENT
  Age: 6 Year
  Sex: Male

DRUGS (7)
  1. DEXAMETHASONE [Suspect]
     Active Substance: DEXAMETHASONE
     Indication: Acute lymphocytic leukaemia
     Dosage: 4.5 MILLIGRAM, QD
     Route: 048
  2. VINCRISTINE [Concomitant]
     Active Substance: VINCRISTINE
     Indication: Acute lymphocytic leukaemia
     Dosage: 1.5 MILLIGRAM/SQ. METER, QD
     Route: 042
  3. RHOPRESSA [Concomitant]
     Active Substance: NETARSUDIL MESYLATE
     Indication: Ocular hypertension
     Dosage: UNK, ONE DROP, DROPS
     Route: 061
  4. DORZOLAMIDE [Concomitant]
     Active Substance: DORZOLAMIDE
     Indication: Ocular hypertension
     Dosage: UNK, DROPS, ONE DROP 3 TIMES A DAY
     Route: 061
  5. LATANOPROST [Concomitant]
     Active Substance: LATANOPROST
     Indication: Ocular hypertension
     Dosage: UNK, 0.005%; ONE DROP BEFORE BEDTIME, DROPS, DROPS
     Route: 061
  6. TIMOLOL MALEATE [Concomitant]
     Active Substance: TIMOLOL MALEATE
     Indication: Ocular hypertension
     Dosage: UNK UNK, BID, ONE DROP, DROPS
     Route: 061
  7. BRIMONIDINE                        /01341102/ [Concomitant]
     Indication: Ocular hypertension
     Dosage: UNK, BID, ONE DROP, DROPS
     Route: 061

REACTIONS (1)
  - Ocular hypertension [Recovered/Resolved]
